FAERS Safety Report 7986841-2 (Version None)
Quarter: 2011Q4

REPORT INFORMATION
  Report Type: 
  Country: None (occurrence: None)
  Receive Date: 20111216
  Receipt Date: 20110919
  Transmission Date: 20120403
  Serious: Yes (Hospitalization)
  Sender: FDA-Public Use
  Company Number: US-BRISTOL-MYERS SQUIBB COMPANY-16028490

PATIENT
  Age: 17 Year
  Sex: Male

DRUGS (2)
  1. ZOLOFT [Suspect]
     Indication: INSOMNIA
     Dates: end: 20110827
  2. ABILIFY [Suspect]
     Indication: DEPRESSION
     Dosage: INITIAL DOSE IS 2.5MG
     Route: 048
     Dates: start: 20110826

REACTIONS (1)
  - TARDIVE DYSKINESIA [None]
